FAERS Safety Report 8254651-7 (Version None)
Quarter: 2012Q2

REPORT INFORMATION
  Report Type: 
  Country: None (occurrence: None)
  Receive Date: 20120403
  Receipt Date: 20120326
  Transmission Date: 20120825
  Serious: Yes (Life-Threatening, Hospitalization, Other)
  Sender: FDA-Public Use
  Company Number: US-BAYER-2011-037864

PATIENT
  Age: 35 Year
  Sex: Female
  Weight: 66.667 kg

DRUGS (2)
  1. YAZ [Suspect]
     Indication: CONTRACEPTION
     Dosage: UNK
     Dates: start: 20060101, end: 20091101
  2. YASMIN [Suspect]
     Indication: CONTRACEPTION
     Dosage: UNK
     Dates: start: 20060101, end: 20091101

REACTIONS (11)
  - ORGAN FAILURE [None]
  - FATIGUE [None]
  - GENERAL PHYSICAL HEALTH DETERIORATION [None]
  - ANHEDONIA [None]
  - CHOLECYSTITIS [None]
  - INTERNAL INJURY [None]
  - ASTHENIA [None]
  - ANXIETY [None]
  - GALLBLADDER NON-FUNCTIONING [None]
  - PAIN [None]
  - EMOTIONAL DISTRESS [None]
